FAERS Safety Report 15398188 (Version 3)
Quarter: 2018Q4

REPORT INFORMATION
  Report Type: Report from Study
  Country: US (occurrence: US)
  Receive Date: 20180918
  Receipt Date: 20181001
  Transmission Date: 20190204
  Serious: Yes (Death, Other)
  Sender: FDA-Public Use
  Company Number: US-BAUSCH-BL-2018-025805

PATIENT
  Sex: Male

DRUGS (1)
  1. XIFAXAN [Suspect]
     Active Substance: RIFAXIMIN
     Indication: PRODUCT USED FOR UNKNOWN INDICATION
     Route: 048
     Dates: end: 201602

REACTIONS (6)
  - Unresponsive to stimuli [Unknown]
  - Hypopnoea [Unknown]
  - Hypophagia [Unknown]
  - Dysphagia [Unknown]
  - Dyspnoea [Unknown]
  - Hepatic failure [Fatal]
